FAERS Safety Report 9735451 (Version 1)
Quarter: 2013Q4

REPORT INFORMATION
  Report Type: Spontaneous
  Country: US (occurrence: US)
  Receive Date: 20131206
  Receipt Date: 20131206
  Transmission Date: 20140711
  Serious: No
  Sender: FDA-Public Use
  Company Number: US-GILEAD-2009-0022870

PATIENT
  Sex: Female
  Weight: 63.05 kg

DRUGS (15)
  1. LETAIRIS [Suspect]
     Indication: PULMONARY ARTERIAL HYPERTENSION
     Route: 048
     Dates: start: 20090224
  2. WARFARIN [Concomitant]
  3. OXYGEN [Concomitant]
  4. LASIX [Concomitant]
  5. DIAZEPAM [Concomitant]
  6. HYZAAR [Concomitant]
  7. MIAPEX [Concomitant]
  8. FLECAINIDE [Concomitant]
  9. PROVENTIL HFA [Concomitant]
  10. ADVAIR 250-50 [Concomitant]
  11. TOPROL XL [Concomitant]
  12. TUMS [Concomitant]
  13. PREVACID [Concomitant]
  14. VERAMYST [Concomitant]
  15. ^APPUREX^ [Concomitant]

REACTIONS (3)
  - Hypotension [Unknown]
  - Heart rate increased [Unknown]
  - Palpitations [Unknown]
